FAERS Safety Report 10288883 (Version 1)
Quarter: 2014Q3

REPORT INFORMATION
  Report Type: Spontaneous
  Country: US (occurrence: US)
  Receive Date: 20140709
  Receipt Date: 20140709
  Transmission Date: 20150326
  Serious: No
  Sender: FDA-Public Use
  Company Number: US-009507513-1407USA002430

PATIENT
  Sex: Female

DRUGS (2)
  1. RAGWITEK [Suspect]
     Active Substance: AMBROSIA ARTEMISIIFOLIA POLLEN
     Dosage: IN THE EVENING
     Route: 048
  2. RAGWITEK [Suspect]
     Active Substance: AMBROSIA ARTEMISIIFOLIA POLLEN
     Dosage: IN THE EVENING
     Route: 048

REACTIONS (2)
  - Local swelling [Recovered/Resolved]
  - Hypoaesthesia oral [Unknown]
